FAERS Safety Report 8059485-4 (Version None)
Quarter: 2012Q1

REPORT INFORMATION
  Report Type: 
  Country: None (occurrence: None)
  Receive Date: 20120120
  Receipt Date: 20120117
  Transmission Date: 20120608
  Serious: Yes (Other)
  Sender: FDA-Public Use
  Company Number: CA-ROCHE-1031499

PATIENT
  Sex: Female
  Weight: 95.34 kg

DRUGS (16)
  1. MAGNESIUM [Concomitant]
  2. MABTHERA [Suspect]
     Indication: RHEUMATOID ARTHRITIS
     Route: 042
     Dates: start: 20100120
  3. NEXIUM [Concomitant]
  4. DOMPERIDONE [Concomitant]
  5. GRAVOL TAB [Concomitant]
  6. CALCIUM [Concomitant]
  7. ASCORBIC ACID [Concomitant]
  8. AVALIDE [Concomitant]
     Indication: HYPERTENSION
  9. PREDNISONE [Concomitant]
  10. ZANTAC [Concomitant]
  11. MULTI-VITAMIN [Concomitant]
  12. IMURAN [Concomitant]
  13. LAXATIVES NOS [Concomitant]
  14. VITAMIN D [Concomitant]
  15. MORPHINE SULFATE [Concomitant]
  16. HYDROCHLOROTHIAZIDE [Concomitant]

REACTIONS (1)
  - PULMONARY HYPERTENSION [None]
